FAERS Safety Report 6032394-8 (Version None)
Quarter: 2009Q1

REPORT INFORMATION
  Report Type: 
  Country: None (occurrence: None)
  Receive Date: 20090109
  Receipt Date: 20090107
  Transmission Date: 20090719
  Serious: Yes (Other)
  Sender: FDA-Public Use
  Company Number: FR-BRISTOL-MYERS SQUIBB COMPANY-14397434

PATIENT
  Age: 4 Decade
  Sex: Male
  Weight: 70 kg

DRUGS (5)
  1. REYATAZ [Suspect]
     Route: 048
     Dates: start: 20080719, end: 20080101
  2. NORVIR [Concomitant]
     Route: 048
     Dates: end: 20080630
  3. TRUVADA [Concomitant]
     Dosage: 1DF=EMTRICITABINE 200MG/TENOFOVIR DISOPROXIL 245MG, 1TAB
     Route: 048
     Dates: end: 20080630
  4. BACTRIM [Concomitant]
     Dosage: 1DF=SULFAMETHOXAZOLE 200MG/TRIMETHOPRIME 40MG, ONE TAB
     Dates: end: 20080630
  5. LEDERFOLINE [Concomitant]
     Dates: end: 20080630

REACTIONS (3)
  - DRUG INEFFECTIVE [None]
  - DRUG LEVEL DECREASED [None]
  - DRUG RESISTANCE [None]
